FAERS Safety Report 11048255 (Version 1)
Quarter: 2015Q2

REPORT INFORMATION
  Report Type: Spontaneous
  Country: US (occurrence: US)
  Receive Date: 20150420
  Receipt Date: 20150420
  Transmission Date: 20150821
  Serious: No
  Sender: FDA-Public Use
  Company Number: US-ABBVIE-14P-163-1254372-00

PATIENT
  Age: 10 Year
  Sex: Female
  Weight: 33.8 kg

DRUGS (1)
  1. LUPRON DEPOT-PED [Suspect]
     Active Substance: LEUPROLIDE ACETATE
     Indication: PRECOCIOUS PUBERTY

REACTIONS (4)
  - Injection site mass [Not Recovered/Not Resolved]
  - Injection site warmth [Recovered/Resolved]
  - Injection site abscess [Recovered/Resolved]
  - Product quality issue [Unknown]

NARRATIVE: CASE EVENT DATE: 20140320
